FAERS Safety Report 19920835 (Version 1)
Quarter: 2021Q4

REPORT INFORMATION
  Report Type: Spontaneous
  Country: US (occurrence: US)
  Receive Date: 20211005
  Receipt Date: 20211005
  Transmission Date: 20220303
  Serious: No
  Sender: FDA-Public Use
  Company Number: US-ADAMAS PHARMA, LLC-2020ADA02286

PATIENT
  Age: 90 Year
  Sex: Female
  Weight: 49.89 kg

DRUGS (2)
  1. GOCOVRI [Suspect]
     Active Substance: AMANTADINE
     Indication: Tardive dyskinesia
     Dosage: 137 MG, 1X/DAY AT BEDTIME X7 DAYS
     Route: 048
     Dates: start: 20200921, end: 20200927
  2. GOCOVRI [Suspect]
     Active Substance: AMANTADINE
     Dosage: UNK
     Route: 048
     Dates: start: 20200928, end: 202010

REACTIONS (4)
  - Dyskinesia [Not Recovered/Not Resolved]
  - Hallucination [Recovering/Resolving]
  - Dizziness [Recovering/Resolving]
  - Fall [Recovering/Resolving]

NARRATIVE: CASE EVENT DATE: 20201006
